FAERS Safety Report 16972596 (Version 1)
Quarter: 2019Q4

REPORT INFORMATION
  Report Type: Spontaneous
  Country: US (occurrence: US)
  Receive Date: 20191030
  Receipt Date: 20191030
  Transmission Date: 20200122
  Serious: Yes (Hospitalization)
  Sender: FDA-Public Use
  Company Number: US-ROCHE-2451235

PATIENT
  Age: 57 Year
  Sex: Male
  Weight: 77.18 kg

DRUGS (2)
  1. RITUXAN [Suspect]
     Active Substance: RITUXIMAB
     Indication: PRODUCT USED FOR UNKNOWN INDICATION
     Dosage: ONGOING- NO
     Route: 065
     Dates: start: 2009
  2. GAZYVA [Suspect]
     Active Substance: OBINUTUZUMAB
     Indication: CHRONIC LYMPHOCYTIC LEUKAEMIA
     Dosage: ONGOING: YES
     Route: 042
     Dates: start: 20190101

REACTIONS (11)
  - Dysgeusia [Not Recovered/Not Resolved]
  - Decreased appetite [Not Recovered/Not Resolved]
  - Vomiting [Unknown]
  - Pruritus [Recovered/Resolved]
  - Memory impairment [Unknown]
  - Rash [Recovered/Resolved]
  - Adverse drug reaction [Recovered/Resolved]
  - Tremor [Recovered/Resolved]
  - Weight decreased [Not Recovered/Not Resolved]
  - Dehydration [Unknown]
  - Dry mouth [Unknown]

NARRATIVE: CASE EVENT DATE: 201910
